FAERS Safety Report 12313410 (Version 2)
Quarter: 2016Q3

REPORT INFORMATION
  Report Type: Report from Study
  Country: GR (occurrence: GR)
  Receive Date: 20160428
  Receipt Date: 20160712
  Transmission Date: 20161109
  Serious: Yes (Hospitalization)
  Sender: FDA-Public Use
  Company Number: PHHO2016GR005881

PATIENT
  Age: 46 Year
  Sex: Male
  Weight: 55.5 kg

DRUGS (7)
  1. NO TREATMENT RECEIVED [Suspect]
     Active Substance: UNSPECIFIED INGREDIENT
     Indication: RENAL TRANSPLANT
     Dosage: NO TREATMENT
     Route: 065
  2. PREZOLON [Suspect]
     Active Substance: PREDNISOLONE
     Indication: RENAL TRANSPLANT
     Dosage: 5-20 MG QD
     Route: 065
     Dates: start: 20150125
  3. TROFOCARD [Concomitant]
     Indication: HYPOMAGNESAEMIA
     Dosage: 1229.6 MG, UNK
     Route: 065
     Dates: start: 20151019
  4. FILICINE [Concomitant]
     Indication: FOLATE DEFICIENCY
     Dosage: 5 MG, QD
     Route: 065
     Dates: start: 20160127
  5. LUMAREN [Concomitant]
     Indication: PROPHYLAXIS
     Dosage: 150 MG, QD
     Route: 065
     Dates: start: 20160127
  6. PROGRAF [Suspect]
     Active Substance: TACROLIMUS\TACROLIMUS ANHYDROUS
     Indication: RENAL TRANSPLANT
     Dosage: 2.5 TO 4.5 MG
     Route: 065
     Dates: start: 20150120
  7. MYFORTIC [Concomitant]
     Active Substance: MYCOPHENOLATE SODIUM
     Indication: RENAL TRANSPLANT
     Dosage: 720 TO 1140 MG
     Route: 065
     Dates: start: 20150120

REACTIONS (3)
  - Abasia [Not Recovered/Not Resolved]
  - Muscular weakness [Not Recovered/Not Resolved]
  - Dysstasia [Unknown]

NARRATIVE: CASE EVENT DATE: 20160418
